FAERS Safety Report 19417642 (Version 4)
Quarter: 2024Q1

REPORT INFORMATION
  Report Type: Report from Study
  Country: MX (occurrence: MX)
  Receive Date: 20210615
  Receipt Date: 20240323
  Transmission Date: 20240409
  Serious: Yes (Death, Hospitalization, Other)
  Sender: FDA-Public Use
  Company Number: MX-NOVARTISPH-NVSC2021MX118534

PATIENT
  Age: 71 Year
  Sex: Male
  Weight: 76 kg

DRUGS (5)
  1. TASIGNA [Suspect]
     Active Substance: NILOTINIB
     Indication: Chronic myeloid leukaemia
     Dosage: 800 MG, QD
     Route: 048
     Dates: start: 2018
  2. TASIGNA [Suspect]
     Active Substance: NILOTINIB
     Dosage: 800 MG, QD
     Route: 048
     Dates: start: 201905
  3. TASIGNA [Suspect]
     Active Substance: NILOTINIB
     Dosage: 400 MG, Q12H (3 YEARS AGO APPROXIMATELY)
     Route: 048
  4. ATORVASTATIN [Suspect]
     Active Substance: ATORVASTATIN
     Indication: Cerebral infarction
     Dosage: UNK
     Route: 065
  5. ASPIRIN [Suspect]
     Active Substance: ASPIRIN
     Indication: Cerebral infarction
     Dosage: 300 MG, QD (X1/2)
     Route: 048

REACTIONS (15)
  - Renal disorder [Fatal]
  - Dehydration [Fatal]
  - Decreased appetite [Fatal]
  - Chromaturia [Fatal]
  - Fatigue [Fatal]
  - Blindness [Fatal]
  - Pruritus [Fatal]
  - Deafness [Fatal]
  - Dysarthria [Unknown]
  - Cerebral infarction [Recovered/Resolved with Sequelae]
  - Pyrexia [Recovered/Resolved]
  - Hypokinesia [Recovering/Resolving]
  - Dry skin [Unknown]
  - Inappropriate schedule of product administration [Unknown]
  - Drug ineffective [Unknown]

NARRATIVE: CASE EVENT DATE: 20210426
